FAERS Safety Report 24829863 (Version 1)
Quarter: 2025Q1

REPORT INFORMATION
  Report Type: Spontaneous
  Country: CN (occurrence: CN)
  Receive Date: 20250110
  Receipt Date: 20250110
  Transmission Date: 20250408
  Serious: Yes (Other)
  Sender: REGENERON
  Company Number: CN-BAYER-2025A004136

PATIENT
  Age: 57 Year
  Sex: Female

DRUGS (1)
  1. EYLEA [Suspect]
     Active Substance: AFLIBERCEPT
     Indication: Age-related macular degeneration
     Dosage: 2 MG, Q1MON; SOLUTION FOR INJECTION; 40 MG/ML
     Route: 031
     Dates: start: 20241120, end: 20241120

REACTIONS (3)
  - Visual impairment [Recovering/Resolving]
  - Uveitis [Recovering/Resolving]
  - Injection site pain [Recovering/Resolving]

NARRATIVE: CASE EVENT DATE: 20241204
